FAERS Safety Report 19712067 (Version 1)
Quarter: 2021Q3

REPORT INFORMATION
  Report Type: Spontaneous
  Country: CA (occurrence: CA)
  Receive Date: 20210817
  Receipt Date: 20210817
  Transmission Date: 20211014
  Serious: Yes (Other)
  Sender: FDA-Public Use
  Company Number: CA-PFIZER INC-202100993653

PATIENT
  Age: 57 Year
  Sex: Male

DRUGS (20)
  1. METFORMIN [Concomitant]
     Active Substance: METFORMIN HYDROCHLORIDE
     Dosage: UNK
  2. ACTONEL ONCE?A?WEEK [Concomitant]
     Dosage: DOSAGE INFO NOT PROVIDED
  3. VITAMIN D NOS [Concomitant]
     Active Substance: VITAMIN D NOS
     Dosage: DOSAGE INFO NOT PROVIDED
  4. PANTOPRAZOLE [Concomitant]
     Active Substance: PANTOPRAZOLE
     Dosage: DOSAGE INFO NOT PROVIDED
  5. SEPTRA DS [Concomitant]
     Active Substance: SULFAMETHOXAZOLE\TRIMETHOPRIM
     Dosage: MONDAY/WEDNESDAY AND FRIDAY
  6. RUXIENCE [Suspect]
     Active Substance: RITUXIMAB-PVVR
     Dosage: 809.25 MG/WEEK FOR 4 WEEKS
     Route: 042
     Dates: start: 20210805
  7. DIPHENHYDRAMINE. [Concomitant]
     Active Substance: DIPHENHYDRAMINE
     Indication: PREMEDICATION
     Dosage: 50 MG
     Dates: start: 20210805
  8. RUXIENCE [Suspect]
     Active Substance: RITUXIMAB-PVVR
     Indication: GRANULOMATOSIS WITH POLYANGIITIS
     Dosage: 809.25 MG/WEEK FOR 4 WEEKS
     Route: 042
     Dates: start: 20210728, end: 20210728
  9. METHYLPREDNISOLONE. [Concomitant]
     Active Substance: METHYLPREDNISOLONE
     Indication: PREMEDICATION
     Dosage: 100 MG
     Dates: start: 20210805
  10. SOTALOL. [Concomitant]
     Active Substance: SOTALOL
     Indication: HEART RATE IRREGULAR
     Dosage: UNK
  11. PREDNISONE. [Concomitant]
     Active Substance: PREDNISONE
     Dosage: DOSAGE INFO NOT PROVIDED
  12. JANUVIA [Concomitant]
     Active Substance: SITAGLIPTIN PHOSPHATE
     Dosage: DOSAGE INFO NOT PROVIDED
  13. RUXIENCE [Suspect]
     Active Substance: RITUXIMAB-PVVR
     Dosage: 809.25 MG/WEEK FOR 4 WEEKS
     Route: 042
     Dates: start: 20210728, end: 20210728
  14. RUXIENCE [Suspect]
     Active Substance: RITUXIMAB-PVVR
     Dosage: 809.25 MG/WEEK FOR 4 WEEKS
     Route: 042
     Dates: start: 20210805, end: 20210805
  15. ROSUVASTATIN. [Concomitant]
     Active Substance: ROSUVASTATIN
     Dosage: DOSAGE INFO NOT PROVIDED
  16. ELIQUIS [Concomitant]
     Active Substance: APIXABAN
     Dosage: 5 MG, 2X/DAY
     Route: 065
  17. CALCIUM [Concomitant]
     Active Substance: CALCIUM
     Dosage: DOSAGE INFO NOT PROVIDED
  18. ACETAMINOPHEN. [Concomitant]
     Active Substance: ACETAMINOPHEN
     Indication: PREMEDICATION
     Dosage: 650 MG
     Dates: start: 20210805
  19. HYDROMORPHONE [Concomitant]
     Active Substance: HYDROMORPHONE
     Dosage: 1 DF
  20. EZETIMIBE. [Concomitant]
     Active Substance: EZETIMIBE
     Dosage: DOSAGE INFO NOT PROVIDED

REACTIONS (9)
  - Dizziness [Unknown]
  - Pain [Unknown]
  - Blood pressure fluctuation [Unknown]
  - Infusion related reaction [Unknown]
  - Illness [Unknown]
  - Intentional product use issue [Unknown]
  - Heart rate increased [Unknown]
  - Off label use [Unknown]
  - Pallor [Unknown]

NARRATIVE: CASE EVENT DATE: 20210728
